FAERS Safety Report 5809904-6 (Version None)
Quarter: 2008Q3

REPORT INFORMATION
  Report Type: 
  Country: None (occurrence: None)
  Receive Date: 20080714
  Receipt Date: 20080714
  Transmission Date: 20090109
  Serious: Yes (Hospitalization, Disabling, Other)
  Sender: FDA-Public Use
  Company Number: None

PATIENT
  Age: 57 Year
  Sex: Male
  Weight: 122.4712 kg

DRUGS (2)
  1. MOXIFLOXACIN HCL [Suspect]
     Dosage: 400 MG QD PO
     Route: 048
     Dates: start: 20080512
  2. LEVOFLOXACIN [Suspect]
     Dosage: 400 MG QD PO
     Route: 048

REACTIONS (4)
  - CONDITION AGGRAVATED [None]
  - COUGH [None]
  - INGUINAL HERNIA [None]
  - WEIGHT DECREASED [None]
